FAERS Safety Report 10008101 (Version 3)
Quarter: 2015Q3

REPORT INFORMATION
  Report Type: Spontaneous
  Country: US (occurrence: US)
  Receive Date: 20140313
  Receipt Date: 20150814
  Transmission Date: 20151125
  Serious: No
  Sender: FDA-Public Use
  Company Number: US-GILEAD-2013-0071314

PATIENT
  Age: 82 Year
  Sex: Female

DRUGS (2)
  1. LETAIRIS [Suspect]
     Active Substance: AMBRISENTAN
     Indication: PULMONARY ARTERIAL HYPERTENSION
     Dosage: 5 MG, UNK
     Route: 048
     Dates: start: 20130205, end: 20130208
  2. LETAIRIS [Suspect]
     Active Substance: AMBRISENTAN
     Indication: CARDIAC DISORDER

REACTIONS (4)
  - Dizziness [Unknown]
  - Fluid retention [Recovered/Resolved]
  - Nasal congestion [Recovered/Resolved]
  - Lethargy [Recovered/Resolved]

NARRATIVE: CASE EVENT DATE: 201302
